FAERS Safety Report 12077028 (Version 2)
Quarter: 2016Q1

REPORT INFORMATION
  Report Type: Spontaneous
  Country: DK (occurrence: DK)
  Receive Date: 20160215
  Receipt Date: 20160226
  Transmission Date: 20160526
  Serious: Yes (Disabling, Other)
  Sender: FDA-Public Use
  Company Number: DK-ASTELLAS-2015US047584

PATIENT
  Age: 71 Year
  Sex: Male

DRUGS (10)
  1. MAREVAN [Concomitant]
     Active Substance: WARFARIN SODIUM
     Indication: DEEP VEIN THROMBOSIS
     Dosage: UNK UNK, UNKNOWN FREQ.
     Route: 065
     Dates: end: 201602
  2. FURIX [Concomitant]
     Active Substance: FUROSEMIDE
     Indication: PRODUCT USED FOR UNKNOWN INDICATION
     Dosage: 40 MG, X 2
     Route: 065
  3. PREDNISOLONE. [Concomitant]
     Active Substance: PREDNISOLONE
     Indication: PRODUCT USED FOR UNKNOWN INDICATION
     Dosage: 20 MG, X 1
     Route: 065
     Dates: start: 20150324
  4. PREDNISOLONE. [Concomitant]
     Active Substance: PREDNISOLONE
     Dosage: 5 MG, X 1
     Route: 065
  5. MYFENAX                            /00372303/ [Concomitant]
     Indication: PRODUCT USED FOR UNKNOWN INDICATION
     Dosage: 750 MG, X 2
     Route: 065
     Dates: start: 20150324
  6. ADVAGRAF [Suspect]
     Active Substance: TACROLIMUS
     Indication: RENAL TRANSPLANT
     Dosage: UNK, UNKNOWN FREQ.
     Route: 065
     Dates: start: 20150324
  7. SULFAMETOXAZOL/TRIMETOPRIM [Concomitant]
     Indication: PRODUCT USED FOR UNKNOWN INDICATION
     Dosage: 400/80 MG, UNKNOWN FREQ.
     Route: 065
     Dates: start: 20150324, end: 201509
  8. PANTOPRAZOLE [Concomitant]
     Active Substance: PANTOPRAZOLE SODIUM
     Indication: PRODUCT USED FOR UNKNOWN INDICATION
     Dosage: 40 MG, X 1
     Route: 065
     Dates: start: 20150324
  9. MYFENAX                            /00372303/ [Concomitant]
     Dosage: 500 MG, X 2
     Route: 065
     Dates: start: 201505
  10. ADVAGRAF [Suspect]
     Active Substance: TACROLIMUS
     Dosage: 8 MG, X 1
     Route: 065
     Dates: start: 201507, end: 20151120

REACTIONS (5)
  - Dysarthria [Not Recovered/Not Resolved]
  - Crying [Not Recovered/Not Resolved]
  - Aphasia [Not Recovered/Not Resolved]
  - Tremor [Recovered/Resolved]
  - Paraesthesia [Recovered/Resolved]

NARRATIVE: CASE EVENT DATE: 201504
